FAERS Safety Report 9680393 (Version 4)
Quarter: 2014Q2

REPORT INFORMATION
  Report Type: Spontaneous
  Country: GB (occurrence: GB)
  Receive Date: 20131111
  Receipt Date: 20140429
  Transmission Date: 20141212
  Serious: Yes (Hospitalization)
  Sender: FDA-Public Use
  Company Number: GB-ACCORD-020160

PATIENT
  Age: 74 Year
  Sex: 0

DRUGS (27)
  1. ALLOPURINOL/ALLOPURINOL SODIUM [Suspect]
     Indication: PRODUCT USED FOR UNKNOWN INDICATION
     Dosage: UNK
     Route: 048
     Dates: start: 20130817, end: 20130902
  2. RITUXIMAB [Suspect]
     Indication: NON-HODGKIN^S LYMPHOMA
     Dosage: PART OF R-CHOP REGIMEN (1ST CYCLE) UNK
     Route: 041
     Dates: start: 20130805, end: 20130805
  3. BENDROFLUMETHIAZIDE [Suspect]
     Indication: PRODUCT USED FOR UNKNOWN INDICATION
     Dosage: UNK
     Route: 048
     Dates: end: 20130831
  4. NIVESTIM [Suspect]
     Indication: PRODUCT USED FOR UNKNOWN INDICATION
     Dosage: UNK
     Route: 058
  5. ATORVASTATIN [Concomitant]
     Dosage: UNK
     Route: 048
  6. CYCLOPHOSPHAMIDE/CYCLOPHOSPHAMIDE MONOHYDRATE [Concomitant]
     Indication: NON-HODGKIN^S LYMPHOMA
     Dosage: PART OF R-CHOP REGIMEN (1ST CYCLE) UNK
     Route: 041
     Dates: start: 20130805, end: 20130805
  7. NYSTATIN/NYSTATIN/ LIPOSOME [Concomitant]
     Dosage: UNK
     Route: 061
  8. BENZYDAMINE [Concomitant]
     Dosage: UNK
     Route: 061
  9. AMLODIPINE [Concomitant]
     Dosage: 10 MG, 1 IN 1 DAY
     Route: 048
     Dates: end: 20130831
  10. METHOTREXATE [Concomitant]
     Dosage: STAT DOSE, UNK
     Route: 037
     Dates: start: 20130815, end: 20130815
  11. LANSOPRAZOLE [Concomitant]
     Dosage: SWITCHED TO RANITIDINE UNK
     Route: 048
     Dates: end: 20130831
  12. METFORMIN [Concomitant]
     Dosage: UNK
     Route: 048
  13. FLUCONAZOLE [Concomitant]
     Dosage: UNK
     Route: 048
  14. RANITIDINE [Concomitant]
     Dosage: UNK
     Route: 050
     Dates: start: 20130831
  15. ONCOVIN [Concomitant]
     Indication: NON-HODGKIN^S LYMPHOMA
     Dosage: UNK
     Route: 065
     Dates: start: 20130805, end: 20130805
  16. ACETYLSALICYLIC ACID [Concomitant]
     Dosage: UNK
     Route: 048
  17. PIPERACILLIN/TAZOBACTAM [Concomitant]
     Dosage: UNK
     Route: 040
  18. MOXONIDINE [Concomitant]
     Dosage: UNK
     Route: 048
     Dates: end: 20130831
  19. METOCLOPRAMIDE [Concomitant]
     Route: 048
  20. VINCRISTINE [Concomitant]
     Indication: NON-HODGKIN^S LYMPHOMA
     Dosage: PART OF R-CHOP REGIMEN (1ST CYCLE) UNK
     Route: 041
     Dates: start: 20130805, end: 20130805
  21. ENOXAPARIN [Concomitant]
     Dosage: UNK
  22. PREDNISOLONE [Concomitant]
     Indication: NON-HODGKIN^S LYMPHOMA
     Dosage: UNK
  23. PARACETAMOL [Concomitant]
     Dosage: UNK
     Route: 048
  24. CLOPIDOGREL [Concomitant]
     Dosage: UNK
     Route: 048
  25. LOSARTAN [Concomitant]
     Dosage: UNK
     Route: 048
  26. DOXORUBICIN [Concomitant]
     Indication: NON-HODGKIN^S LYMPHOMA
     Dosage: PART OF R-CHOP REGIMEN (1ST CYCLE) UNK
     Route: 041
     Dates: start: 20130805, end: 20130805
  27. MEROPENEM [Concomitant]
     Dosage: UNK
     Route: 040

REACTIONS (13)
  - Rash pustular [Unknown]
  - Skin lesion [Unknown]
  - Skin ulcer [Unknown]
  - Rash [Recovered/Resolved]
  - Pneumonia [Unknown]
  - Mucous membrane disorder [Unknown]
  - Skin discolouration [Unknown]
  - Abscess [Unknown]
  - Extravasation blood [Unknown]
  - Acanthosis [Unknown]
  - Skin oedema [Unknown]
  - Nodule [Unknown]
  - Neutrophilic dermatosis [Unknown]
